FAERS Safety Report 16952266 (Version 2)
Quarter: 2019Q4

REPORT INFORMATION
  Report Type: Spontaneous
  Country: JP (occurrence: JP)
  Receive Date: 20191023
  Receipt Date: 20191105
  Transmission Date: 20200122
  Serious: Yes (Death, Hospitalization)
  Sender: FDA-Public Use
  Company Number: NVSJ2019JP000475

PATIENT
  Age: 10 Year
  Sex: Male

DRUGS (1)
  1. VOLTAREN [Suspect]
     Active Substance: DICLOFENAC SODIUM
     Indication: HYPERTHERMIA
     Route: 065

REACTIONS (7)
  - Altered state of consciousness [Unknown]
  - Depressed level of consciousness [Unknown]
  - Multiple organ dysfunction syndrome [Fatal]
  - Vomiting [Unknown]
  - Encephalopathy [Unknown]
  - Rhinorrhoea [Unknown]
  - Epistaxis [Unknown]
